FAERS Safety Report 15789161 (Version 1)
Quarter: 2019Q1

REPORT INFORMATION
  Report Type: Spontaneous
  Country: US (occurrence: US)
  Receive Date: 20190104
  Receipt Date: 20190104
  Transmission Date: 20190417
  Serious: Yes (Other)
  Sender: FDA-Public Use
  Company Number: US-PFIZER INC-2018535303

PATIENT
  Age: 59 Year
  Sex: Male
  Weight: 146.51 kg

DRUGS (2)
  1. LYRICA [Suspect]
     Active Substance: PREGABALIN
     Indication: NEUROPATHY PERIPHERAL
     Dosage: 150 MG, 2X/DAY [Q 12 HOURS(TWICE A DAY)]
     Route: 048
  2. WATER. [Concomitant]
     Active Substance: WATER
     Dosage: UNK

REACTIONS (11)
  - Malaise [Unknown]
  - Weight increased [Unknown]
  - Fall [Unknown]
  - Loss of personal independence in daily activities [Unknown]
  - Drug effect incomplete [Unknown]
  - Abdominal distension [Unknown]
  - Mental disorder [Unknown]
  - Hypertension [Unknown]
  - Fluid retention [Unknown]
  - Onychoclasis [Unknown]
  - Dizziness [Unknown]
